FAERS Safety Report 5522552-0 (Version None)
Quarter: 2007Q4

REPORT INFORMATION
  Report Type: 
  Country: None (occurrence: None)
  Receive Date: 20071120
  Receipt Date: 20071112
  Transmission Date: 20080405
  Serious: Yes (Hospitalization)
  Sender: FDA-Public Use
  Company Number: DE-PFIZER INC-2007091833

PATIENT
  Sex: Female
  Weight: 85 kg

DRUGS (4)
  1. SORTIS [Suspect]
     Indication: PROPHYLAXIS
     Route: 048
     Dates: start: 20050901, end: 20071022
  2. SORTIS [Suspect]
     Indication: HYPERCHOLESTEROLAEMIA
  3. L-THYROXIN [Concomitant]
  4. HARPAGOPHYTUM PROCUMBENS [Concomitant]

REACTIONS (3)
  - MYALGIA [None]
  - OSTEOARTHRITIS [None]
  - SCIATICA [None]
